FAERS Safety Report 6781494-3 (Version None)
Quarter: 2010Q2

REPORT INFORMATION
  Report Type: 
  Country: None (occurrence: None)
  Receive Date: 20100621
  Receipt Date: 20100609
  Transmission Date: 20101027
  Serious: Yes (Hospitalization)
  Sender: FDA-Public Use
  Company Number: FR-PFIZER INC-2010071937

PATIENT
  Age: 72 Year
  Sex: Female

DRUGS (10)
  1. ADRIBLASTINE [Suspect]
     Dosage: 41.5 MG, SINGLE
     Route: 042
     Dates: start: 20100212, end: 20100212
  2. SOLU-MEDROL [Suspect]
     Dosage: 66.4 MG, SINGLE
     Route: 042
     Dates: start: 20100212, end: 20100212
  3. ENDOXAN [Suspect]
     Dosage: 664 MG, SINGLE
     Route: 042
     Dates: start: 20100212, end: 20100212
  4. ONCOVIN [Suspect]
     Dosage: 1 MG, SINGLE
     Route: 042
     Dates: start: 20100212, end: 20100212
  5. OFLOCET [Concomitant]
     Dosage: 200 MG, 2X/DAY
     Route: 048
     Dates: start: 20100215, end: 20100308
  6. MABTHERA [Concomitant]
     Dosage: 622.5 MG, SINGLE
     Route: 042
     Dates: start: 20100212
  7. LOVENOX [Concomitant]
     Dosage: 0.5 IU, 2X/DAY
  8. FORLAX [Concomitant]
  9. IMOVANE [Concomitant]
     Dosage: AS NEEDED
  10. EFFERALGAN [Concomitant]
     Dosage: AS NEEDED

REACTIONS (3)
  - ACUTE PULMONARY OEDEMA [None]
  - ATRIAL FIBRILLATION [None]
  - DYSPNOEA [None]
